FAERS Safety Report 9748747 (Version 2)
Quarter: 2014Q1

REPORT INFORMATION
  Report Type: Spontaneous
  Country: FR (occurrence: FR)
  Receive Date: 20131212
  Receipt Date: 20140214
  Transmission Date: 20141002
  Serious: Yes (Hospitalization)
  Sender: FDA-Public Use
  Company Number: FR-009507513-1312FRA001601

PATIENT
  Age: 68 Year
  Sex: Male

DRUGS (10)
  1. JANUMET [Suspect]
     Indication: TYPE 2 DIABETES MELLITUS
     Dosage: 1 DF, BID
     Route: 048
     Dates: start: 20110601, end: 20131114
  2. RAMIPRIL [Suspect]
     Indication: HYPERTENSION
     Dosage: 10 MG, QD
     Route: 048
  3. ESIDREX [Suspect]
     Indication: HYPERTENSION
     Dosage: 0.5 DF, QD
     Route: 048
  4. ALLOPURINOL [Concomitant]
     Dosage: 200 MG, QD
     Route: 048
  5. EFFERALGAN [Concomitant]
     Dosage: 1 DF, TID
     Route: 048
  6. TRANDATE [Concomitant]
     Dosage: 1 DF, BID
     Route: 048
  7. KARDEGIC [Concomitant]
     Dosage: 1 DF, QD
     Route: 048
  8. LAMISIL (TERBINAFINE) [Concomitant]
     Dosage: 1 DF, QD
     Route: 061
  9. LEVOTHYROX [Concomitant]
     Dosage: 1 DF, QD
     Route: 048
  10. DAIVOBET [Concomitant]
     Dosage: 1 DF, QD
     Route: 061

REACTIONS (3)
  - Lipase increased [Recovering/Resolving]
  - Amylase increased [Recovering/Resolving]
  - Angioedema [Not Recovered/Not Resolved]
